FAERS Safety Report 24584705 (Version 1)
Quarter: 2024Q4

REPORT INFORMATION
  Report Type: Other
  Country: LU (occurrence: LU)
  Receive Date: 20241106
  Receipt Date: 20241106
  Transmission Date: 20250115
  Serious: Yes (Other)
  Sender: B BRAUN
  Company Number: LU-B.Braun Medical Inc.-2164521

PATIENT
  Age: 59 Year
  Sex: Male

DRUGS (6)
  1. CEFAZOLIN SODIUM [Suspect]
     Active Substance: CEFAZOLIN SODIUM
  2. CARBAMAZEPINE [Suspect]
     Active Substance: CARBAMAZEPINE
  3. CEFPODOXIME [Suspect]
     Active Substance: CEFPODOXIME
  4. VANCOMYCIN [Suspect]
     Active Substance: VANCOMYCIN
  5. PIPERACILLIN SODIUM\TAZOBACTAM SODIUM [Suspect]
     Active Substance: PIPERACILLIN SODIUM\TAZOBACTAM SODIUM
  6. AMOXICILLIN\CLAVULANIC ACID [Suspect]
     Active Substance: AMOXICILLIN\CLAVULANIC ACID

REACTIONS (1)
  - Drug reaction with eosinophilia and systemic symptoms [Unknown]
